FAERS Safety Report 10584226 (Version 1)
Quarter: 2014Q4

REPORT INFORMATION
  Report Type: Spontaneous
  Country: US (occurrence: None)
  Receive Date: 20141113
  Receipt Date: 20141113
  Transmission Date: 20150529
  Serious: Yes (Disabling)
  Sender: FDA-Public Use
  Company Number: None

PATIENT
  Age: 63 Year
  Sex: Female

DRUGS (8)
  1. GARLIC. [Concomitant]
     Active Substance: GARLIC
  2. VITAMIN E [Concomitant]
     Active Substance: .ALPHA.-TOCOPHEROL
  3. VOLTAREN [Suspect]
     Active Substance: DICLOFENAC SODIUM
     Indication: OSTEOARTHRITIS
     Dosage: 4 GRAMS, 4 TIMES DAILY, ON SKIN KNEE
     Dates: start: 20141014, end: 20141015
  4. AMLODIPINE BESYLATE. [Concomitant]
     Active Substance: AMLODIPINE BESYLATE
  5. CENTRUM SILVER MULTIVITAMIN [Concomitant]
  6. FLUTICASONE [Concomitant]
     Active Substance: FLUTICASONE\FLUTICASONE PROPIONATE
  7. TRIAMTERENE. [Concomitant]
     Active Substance: TRIAMTERENE
  8. VITAMIN B12 [Concomitant]
     Active Substance: CYANOCOBALAMIN

REACTIONS (4)
  - Eye disorder [None]
  - Rash erythematous [None]
  - Rash [None]
  - Asthenopia [None]

NARRATIVE: CASE EVENT DATE: 20141014
